FAERS Safety Report 21312494 (Version 1)
Quarter: 2022Q3

REPORT INFORMATION
  Report Type: Spontaneous
  Country: US (occurrence: None)
  Receive Date: 20220909
  Receipt Date: 20220909
  Transmission Date: 20221026
  Serious: No
  Sender: FDA-Public Use
  Company Number: US-ARIS GLOBAL-202206-1162

PATIENT
  Sex: Female

DRUGS (4)
  1. OXERVATE [Suspect]
     Active Substance: CENEGERMIN-BKBJ
     Indication: Neurotrophic keratopathy
     Route: 047
     Dates: start: 20220615
  2. POTASSIUM [Concomitant]
     Active Substance: POTASSIUM
     Dosage: 595(99)MG
  3. ALLOPURINOL [Concomitant]
     Active Substance: ALLOPURINOL
  4. LISINOPRIL [Concomitant]
     Active Substance: LISINOPRIL

REACTIONS (3)
  - Eye pain [Unknown]
  - Dry eye [Unknown]
  - Eye irritation [Unknown]
